FAERS Safety Report 11999073 (Version 1)
Quarter: 2016Q1

REPORT INFORMATION
  Report Type: Spontaneous
  Country: US (occurrence: None)
  Receive Date: 20160203
  Receipt Date: 20160203
  Transmission Date: 20160526
  Serious: Yes (Other)
  Sender: FDA-Public Use
  Company Number: None

PATIENT
  Age: 44 Year
  Sex: Female
  Weight: 63.5 kg

DRUGS (4)
  1. PREDNISONE. [Concomitant]
     Active Substance: PREDNISONE
  2. LEVAQUIN [Suspect]
     Active Substance: LEVOFLOXACIN
     Indication: SINUSITIS
     Dosage: 1 PILL QD ORAL
     Route: 048
  3. NASAL IRRIGATIONS [Concomitant]
  4. FLONASE [Concomitant]
     Active Substance: FLUTICASONE PROPIONATE

REACTIONS (1)
  - Tendon pain [None]

NARRATIVE: CASE EVENT DATE: 20160115
